FAERS Safety Report 7417990-5 (Version None)
Quarter: 2011Q2

REPORT INFORMATION
  Report Type: 
  Country: None (occurrence: None)
  Receive Date: 20110415
  Receipt Date: 20110412
  Transmission Date: 20111010
  Serious: Yes (Other)
  Sender: FDA-Public Use
  Company Number: US-PFIZER INC-2011054492

PATIENT
  Sex: Female

DRUGS (7)
  1. JANUVIA [Concomitant]
     Dosage: UNK
  2. ZOLOFT [Suspect]
     Indication: DEPRESSION
     Dosage: 50 MG, 1X/DAY
     Route: 048
     Dates: start: 20060227, end: 20090909
  3. LANTUS [Concomitant]
     Dosage: UNK
  4. ZOLOFT [Suspect]
     Dosage: 100 MG, 1X/DAY
     Route: 048
  5. CYMBALTA [Suspect]
     Indication: PAIN
     Dosage: UNK
  6. NEXIUM [Concomitant]
     Dosage: UNK
  7. ADVAIR HFA [Concomitant]
     Dosage: UNK

REACTIONS (2)
  - TYPE 2 DIABETES MELLITUS [None]
  - DEPRESSION [None]
